FAERS Safety Report 6230190-X (Version None)
Quarter: 2009Q2

REPORT INFORMATION
  Report Type: 
  Country: None (occurrence: None)
  Receive Date: 20090615
  Receipt Date: 20090605
  Transmission Date: 20091009
  Serious: Yes (Hospitalization)
  Sender: FDA-Public Use
  Company Number: PL-PFIZER INC-2009223786

PATIENT
  Age: 61 Year

DRUGS (11)
  1. BLINDED *PLACEBO [Suspect]
     Indication: BONE PAIN
     Dosage: UNK
     Route: 048
     Dates: start: 20090526, end: 20090605
  2. BLINDED PREGABALIN [Suspect]
     Indication: BONE PAIN
     Dosage: UNK
     Route: 048
     Dates: start: 20090526, end: 20090605
  3. SEVREDOL [Concomitant]
     Dosage: UNK
     Route: 048
     Dates: start: 20090513
  4. DURAGESIC-100 [Concomitant]
     Dosage: UNK
     Route: 062
     Dates: start: 20080911
  5. MEGESTROL ACETATE [Concomitant]
     Dosage: UNK
     Route: 048
     Dates: start: 20090311
  6. METAMIZOLE [Concomitant]
     Dosage: UNK
     Route: 048
     Dates: start: 20090511
  7. METOCLOPRAMIDE [Concomitant]
     Dosage: UNK
     Route: 048
     Dates: start: 20080821
  8. KETOPROFEN [Concomitant]
     Dosage: UNK
     Route: 048
     Dates: start: 20080828
  9. ENOXAPARIN SODIUM [Concomitant]
     Dosage: UNK
     Route: 058
     Dates: start: 20080911
  10. OMEPRAZOL [Concomitant]
     Dosage: UNK
     Route: 048
     Dates: start: 20080911
  11. AMITRIPTYLINE [Concomitant]
     Dosage: UNK
     Route: 048
     Dates: start: 20090101

REACTIONS (3)
  - ANOREXIA [None]
  - DISORIENTATION [None]
  - MUSCULOSKELETAL PAIN [None]
